FAERS Safety Report 6082185-7 (Version None)
Quarter: 2009Q1

REPORT INFORMATION
  Report Type: 
  Country: None (occurrence: None)
  Receive Date: 20090218
  Receipt Date: 20090213
  Transmission Date: 20090719
  Serious: Yes (Hospitalization)
  Sender: FDA-Public Use
  Company Number: A0768489A

PATIENT
  Sex: Female

DRUGS (4)
  1. SEREVENT [Suspect]
     Indication: DRUG USE FOR UNKNOWN INDICATION
     Route: 055
  2. ACCOLATE [Concomitant]
  3. ATROVENT [Concomitant]
  4. MAXAIR [Concomitant]

REACTIONS (1)
  - WHEEZING [None]
